FAERS Safety Report 16362309 (Version 2)
Quarter: 2019Q2

REPORT INFORMATION
  Report Type: Spontaneous
  Country: TR (occurrence: TR)
  Receive Date: 20190528
  Receipt Date: 20190604
  Transmission Date: 20190711
  Serious: Yes (Hospitalization, Other)
  Sender: FDA-Public Use
  Company Number: TR-BAUSCH-BL-2019-015234

PATIENT
  Age: 67 Year
  Sex: Male

DRUGS (3)
  1. TACROLIMUS. [Suspect]
     Active Substance: TACROLIMUS
     Indication: IMMUNOSUPPRESSANT DRUG THERAPY
     Dosage: 1000 MG 1X2 (ORAL ON PREOPERATIVE DAY), 1000 MG (AT 08:00 AND 20:00 ON POST-OPERATIVE DAY 1-7)
     Route: 048
     Dates: start: 2008
  2. MYCOPHENOLIC ACID. [Suspect]
     Active Substance: MYCOPHENOLIC ACID
     Indication: IMMUNOSUPPRESSANT DRUG THERAPY
     Dosage: 500 MG 1X2 (ORAL ON PREOPERATIVE DAY), 500 MG (AT 08:00 + 20:00 ON POST-OPERATIVE DAY 1-7)
     Route: 048
     Dates: start: 2008
  3. PREDNISOLONE. [Suspect]
     Active Substance: PREDNISOLONE
     Indication: IMMUNOSUPPRESSANT DRUG THERAPY
     Route: 048
     Dates: start: 2008

REACTIONS (2)
  - Angina pectoris [Recovered/Resolved]
  - Coronary artery occlusion [Recovered/Resolved]
